FAERS Safety Report 22130075 (Version 1)
Quarter: 2023Q1

REPORT INFORMATION
  Report Type: Spontaneous
  Country: CN (occurrence: CN)
  Receive Date: 20230323
  Receipt Date: 20230323
  Transmission Date: 20230417
  Serious: Yes (Other)
  Sender: FDA-Public Use
  Company Number: CN-PFIZER INC-PV202300053883

PATIENT
  Age: 12 Year
  Sex: Female
  Weight: 36 kg

DRUGS (2)
  1. CYTARABINE [Suspect]
     Active Substance: CYTARABINE
     Indication: Acute lymphocytic leukaemia
     Dosage: 95 MG, 1X/DAY
     Route: 041
     Dates: start: 20230217, end: 20230221
  2. CYTARABINE [Suspect]
     Active Substance: CYTARABINE
     Dosage: 95 MG, 1X/DAY
     Route: 041
     Dates: start: 20230224, end: 20230228

REACTIONS (1)
  - Blood bilirubin increased [Recovering/Resolving]

NARRATIVE: CASE EVENT DATE: 20230226
